FAERS Safety Report 22155964 (Version 1)
Quarter: 2023Q1

REPORT INFORMATION
  Report Type: Spontaneous
  Country: FR (occurrence: FR)
  Receive Date: 20230330
  Receipt Date: 20230330
  Transmission Date: 20230417
  Serious: Yes (Hospitalization)
  Sender: FDA-Public Use
  Company Number: None

PATIENT
  Age: 68 Year
  Sex: Female

DRUGS (3)
  1. PROPOFOL [Suspect]
     Active Substance: PROPOFOL
     Indication: General anaesthesia
     Dosage: 1 DF
     Route: 042
     Dates: start: 20180517, end: 20180517
  2. SUCCINYLCHOLINE [Suspect]
     Active Substance: SUCCINYLCHOLINE
     Indication: General anaesthesia
     Dosage: 1 DF
     Route: 042
     Dates: start: 20180517, end: 20180517
  3. SUFENTA [Suspect]
     Active Substance: SUFENTANIL CITRATE
     Indication: General anaesthesia
     Dosage: 1 DF
     Route: 042
     Dates: start: 20180517, end: 20180517

REACTIONS (2)
  - Anaphylactic reaction [Recovered/Resolved]
  - Allergy test negative [Recovered/Resolved]

NARRATIVE: CASE EVENT DATE: 20180517
